FAERS Safety Report 24064618 (Version 4)
Quarter: 2025Q3

REPORT INFORMATION
  Report Type: Report from Study
  Country: CA (occurrence: CA)
  Receive Date: 20240709
  Receipt Date: 20250805
  Transmission Date: 20251021
  Serious: Yes (Hospitalization, Other)
  Sender: TAKEDA
  Company Number: CA-TAKEDA-2024TUS068534

PATIENT
  Sex: Female

DRUGS (6)
  1. VEDOLIZUMAB [Suspect]
     Active Substance: VEDOLIZUMAB
     Indication: Crohn^s disease
  2. VEDOLIZUMAB [Suspect]
     Active Substance: VEDOLIZUMAB
  3. ASACOL [Concomitant]
     Active Substance: MESALAMINE
  4. IMURAN [Concomitant]
     Active Substance: AZATHIOPRINE
  5. CALCIUM [Concomitant]
     Active Substance: CALCIUM
  6. B12 [Concomitant]

REACTIONS (4)
  - Biliary obstruction [Recovering/Resolving]
  - Cholecystitis [Recovering/Resolving]
  - Abdominal pain lower [Recovering/Resolving]
  - Umbilical hernia [Not Recovered/Not Resolved]
